FAERS Safety Report 16058318 (Version 6)
Quarter: 2021Q1

REPORT INFORMATION
  Report Type: Report from Study
  Country: US (occurrence: US)
  Receive Date: 20190311
  Receipt Date: 20210216
  Transmission Date: 20210419
  Serious: Yes (Hospitalization)
  Sender: FDA-Public Use
  Company Number: US-BAUSCH-BL-2018-016980

PATIENT
  Age: 76 Year
  Sex: Male

DRUGS (4)
  1. LACTULOSE. [Concomitant]
     Active Substance: LACTULOSE
     Indication: PRODUCT USED FOR UNKNOWN INDICATION
     Route: 048
  2. XIFAXAN [Suspect]
     Active Substance: RIFAXIMIN
     Dosage: HAD BEEN OUT OF XIFAXAN FOR 3 MONTHS
     Route: 048
     Dates: start: 2018, end: 202001
  3. XIFAXAN [Suspect]
     Active Substance: RIFAXIMIN
     Indication: HEPATIC CIRRHOSIS
     Route: 048
     Dates: start: 2018, end: 201805
  4. XIFAXAN [Suspect]
     Active Substance: RIFAXIMIN
     Dosage: RAN OUT APPRX. A WEEK AGO
     Route: 048
     Dates: end: 202102

REACTIONS (7)
  - Balance disorder [Not Recovered/Not Resolved]
  - Gastrointestinal infection [Unknown]
  - Insurance issue [Unknown]
  - Product supply issue [Unknown]
  - Confusional state [Not Recovered/Not Resolved]
  - Therapy interrupted [Unknown]
  - Hospitalisation [Recovered/Resolved]

NARRATIVE: CASE EVENT DATE: 2018
